FAERS Safety Report 8316990-0 (Version None)
Quarter: 2012Q2

REPORT INFORMATION
  Report Type: 
  Country: None (occurrence: None)
  Receive Date: 20120425
  Receipt Date: 20120404
  Transmission Date: 20120825
  Serious: No
  Sender: FDA-Public Use
  Company Number: 2012-005464

PATIENT
  Sex: Male
  Weight: 88.4514 kg

DRUGS (1)
  1. LEUPROLIDE ACETATE [Suspect]
     Indication: PROSTATE CANCER
     Dosage: 22.5MG SQ
     Route: 058
     Dates: start: 20120127

REACTIONS (1)
  - DRUG INEFFECTIVE [None]
